FAERS Safety Report 10188684 (Version 1)
Quarter: 2014Q2

REPORT INFORMATION
  Report Type: Spontaneous
  Country: JP (occurrence: JP)
  Receive Date: 20140522
  Receipt Date: 20140522
  Transmission Date: 20141212
  Serious: Yes (Other)
  Sender: FDA-Public Use
  Company Number: CHPA2014JP006842

PATIENT
  Sex: Male

DRUGS (2)
  1. NICOTINELL TTS [Suspect]
     Indication: SMOKING CESSATION THERAPY
     Dosage: 52.5 MG, UNK
     Route: 062
     Dates: start: 201404
  2. NICOTINELL TTS [Suspect]
     Dosage: 35 MG, UNK
     Route: 062
     Dates: start: 201404

REACTIONS (1)
  - Convulsion [Recovered/Resolved]
